FAERS Safety Report 6160282-5 (Version None)
Quarter: 2009Q2

REPORT INFORMATION
  Report Type: 
  Country: None (occurrence: None)
  Receive Date: 20090416
  Receipt Date: 20090416
  Transmission Date: 20091009
  Serious: Yes (Life-Threatening, Hospitalization, Disabling)
  Sender: FDA-Public Use
  Company Number: None

PATIENT
  Sex: Male
  Weight: 99.3377 kg

DRUGS (3)
  1. METOPROLOL SUCCINATE [Suspect]
     Indication: HYPERTENSION
     Dosage: 2 TABS TWICE A DAY
     Dates: start: 20090124, end: 20090319
  2. METOPROLOL SUCCINATE [Suspect]
     Indication: PALPITATIONS
     Dosage: 2 TABS TWICE A DAY
     Dates: start: 20090124, end: 20090319
  3. METOPROLOL SUCCINATE [Suspect]
     Indication: TACHYCARDIA
     Dosage: 2 TABS TWICE A DAY
     Dates: start: 20090124, end: 20090319

REACTIONS (3)
  - BLOOD PRESSURE INCREASED [None]
  - HEART RATE INCREASED [None]
  - TABLET ISSUE [None]
